FAERS Safety Report 8574959-5 (Version None)
Quarter: 2012Q3

REPORT INFORMATION
  Report Type: 
  Country: None (occurrence: None)
  Receive Date: 20120807
  Receipt Date: 20120731
  Transmission Date: 20120928
  Serious: Yes (Other)
  Sender: FDA-Public Use
  Company Number: US-BAYER-2012-077043

PATIENT
  Sex: Female

DRUGS (1)
  1. CIPROFLOXACIN HCL [Suspect]
     Indication: CYSTITIS
     Dosage: UNK, BID
     Route: 048
     Dates: start: 20120501, end: 20120502

REACTIONS (10)
  - NECK PAIN [None]
  - ABASIA [None]
  - HEART RATE INCREASED [None]
  - BLOOD PRESSURE INCREASED [None]
  - PAIN IN EXTREMITY [None]
  - TENDON PAIN [None]
  - TREMOR [None]
  - BACK PAIN [None]
  - MYALGIA [None]
  - ARTHRALGIA [None]
